FAERS Safety Report 8834492 (Version 1)
Quarter: 2012Q4

REPORT INFORMATION
  Report Type: 
  Country: US (occurrence: US)
  Receive Date: 20121010
  Receipt Date: 20121010
  Transmission Date: 20130627
  Serious: Yes (Other)
  Sender: FDA-Public Use
  Company Number: PHEH2012US019806

PATIENT
  Sex: Male

DRUGS (1)
  1. MYFORTIC [Suspect]
     Dosage: 2 DF, BID
     Route: 048

REACTIONS (5)
  - Gout [Unknown]
  - Memory impairment [Unknown]
  - Confusional state [Unknown]
  - Hypertension [Unknown]
  - Diabetes mellitus [Unknown]
